FAERS Safety Report 25505750 (Version 1)
Quarter: 2025Q3

REPORT INFORMATION
  Report Type: Spontaneous
  Country: EU (occurrence: EU)
  Receive Date: 20250702
  Receipt Date: 20250702
  Transmission Date: 20251021
  Serious: Yes (Other)
  Sender: MYLAN
  Company Number: EU-MYLANLABS-2025M1054908

PATIENT
  Age: 68 Year
  Sex: Male

DRUGS (2)
  1. NEURONTIN [Suspect]
     Active Substance: GABAPENTIN
     Indication: Product used for unknown indication
     Dosage: 2 DOSAGE FORM, QD (INITIALLY)
  2. NEURONTIN [Suspect]
     Active Substance: GABAPENTIN
     Dosage: 3 DOSAGE FORM, QD (LATELY)

REACTIONS (1)
  - Erectile dysfunction [Not Recovered/Not Resolved]
